FAERS Safety Report 25529351 (Version 1)
Quarter: 2025Q3

REPORT INFORMATION
  Report Type: Spontaneous
  Country: US (occurrence: None)
  Receive Date: 20250707
  Receipt Date: 20250707
  Transmission Date: 20251020
  Serious: Yes (Death)
  Sender: FDA-CTU
  Company Number: None

PATIENT
  Age: 52 Year
  Sex: Female

DRUGS (4)
  1. BENLYSTA [Suspect]
     Active Substance: BELIMUMAB
     Indication: Renal disorder
  2. BENLYSTA [Concomitant]
     Active Substance: BELIMUMAB
  3. FOLIC ACID [Concomitant]
     Active Substance: FOLIC ACID
  4. LIDOCAINE\PRILOCAINE [Concomitant]
     Active Substance: LIDOCAINE\PRILOCAINE

REACTIONS (1)
  - Death [None]

NARRATIVE: CASE EVENT DATE: 20250706
